FAERS Safety Report 14457736 (Version 4)
Quarter: 2018Q2

REPORT INFORMATION
  Report Type: Spontaneous
  Country: DE (occurrence: DE)
  Receive Date: 20180130
  Receipt Date: 20180413
  Transmission Date: 20180711
  Serious: Yes (Life-Threatening, Hospitalization, Other)
  Sender: FDA-Public Use
  Company Number: DE-JNJFOC-20150720319

PATIENT
  Age: 93 Year
  Sex: Female

DRUGS (47)
  1. RISPERDAL [Suspect]
     Active Substance: RISPERIDONE
     Indication: RESTLESSNESS
     Dosage: 0.5-0.5-0.5 MG
     Route: 048
     Dates: end: 20150101
  2. LACTULOSE. [Concomitant]
     Active Substance: LACTULOSE
     Indication: PRODUCT USED FOR UNKNOWN INDICATION
     Route: 065
  3. BROMAZANIL [Concomitant]
     Active Substance: BROMAZEPAM
     Indication: IRRITABILITY
     Route: 065
  4. BROMAZANIL [Concomitant]
     Active Substance: BROMAZEPAM
     Indication: DEMENTIA
     Route: 065
  5. PHENPROCOUMON [Concomitant]
     Active Substance: PHENPROCOUMON
     Route: 065
  6. TORASEMIDE [Concomitant]
     Active Substance: TORSEMIDE
     Dosage: 0.5 DAYS
     Route: 065
  7. RISPERDAL [Suspect]
     Active Substance: RISPERIDONE
     Indication: IRRITABILITY
     Dosage: 0.5-0.5-0.5 MG
     Route: 048
     Dates: end: 20150101
  8. DOXEPIN [Suspect]
     Active Substance: DOXEPIN
     Indication: RESTLESSNESS
     Route: 065
  9. DOXEPIN [Suspect]
     Active Substance: DOXEPIN
     Indication: IRRITABILITY
     Route: 065
  10. DOXEPIN [Suspect]
     Active Substance: DOXEPIN
     Indication: ANXIETY
     Route: 065
  11. L-THYROXIN [Concomitant]
     Active Substance: LEVOTHYROXINE SODIUM
     Indication: PRODUCT USED FOR UNKNOWN INDICATION
     Route: 065
  12. BROMAZANIL [Concomitant]
     Active Substance: BROMAZEPAM
     Indication: DEMENTIA
     Dosage: 3 TO 4 TIMES
     Route: 065
  13. DOXEPIN [Suspect]
     Active Substance: DOXEPIN
     Indication: DEMENTIA
     Dosage: 10-10-25 MG DOSAGE
     Route: 065
  14. BROMAZANIL [Concomitant]
     Active Substance: BROMAZEPAM
     Indication: IRRITABILITY
     Dosage: 3 TO 4 TIMES
     Route: 065
  15. BROMAZANIL [Concomitant]
     Active Substance: BROMAZEPAM
     Indication: AGITATION
     Route: 065
  16. BUSPIRONE [Suspect]
     Active Substance: BUSPIRONE HYDROCHLORIDE
     Indication: ANXIETY
     Route: 065
  17. DOXEPIN [Suspect]
     Active Substance: DOXEPIN
     Indication: DEPRESSION
     Route: 065
  18. MELPERONE [Suspect]
     Active Substance: MELPERONE
     Indication: PRODUCT USED FOR UNKNOWN INDICATION
     Route: 065
  19. BROMAZANIL [Concomitant]
     Active Substance: BROMAZEPAM
     Indication: IRRITABILITY
     Route: 065
  20. RISPERDAL [Suspect]
     Active Substance: RISPERIDONE
     Indication: DEMENTIA
     Dosage: 0.5-0.5-0.5 MG
     Route: 048
     Dates: end: 20150101
  21. RISPERDAL [Suspect]
     Active Substance: RISPERIDONE
     Indication: ANXIETY
     Dosage: 0.5-0.5-0.5 MG
     Route: 048
     Dates: end: 20150101
  22. DOXEPIN [Suspect]
     Active Substance: DOXEPIN
     Indication: IRRITABILITY
     Dosage: 10-10-25 MG DOSAGE
     Route: 065
  23. DOXEPIN [Suspect]
     Active Substance: DOXEPIN
     Indication: ANXIETY
     Dosage: 10-10-25 MG DOSAGE
     Route: 065
  24. DOXEPIN [Suspect]
     Active Substance: DOXEPIN
     Indication: DEPRESSION
     Dosage: 10-10-25 MG DOSAGE
     Route: 065
  25. DOXEPIN [Suspect]
     Active Substance: DOXEPIN
     Indication: AGITATION
     Route: 065
  26. RAMIPRIL. [Concomitant]
     Active Substance: RAMIPRIL
     Indication: PRODUCT USED FOR UNKNOWN INDICATION
     Route: 065
  27. BROMAZANIL [Concomitant]
     Active Substance: BROMAZEPAM
     Indication: ANXIETY
     Route: 065
  28. BROMAZANIL [Concomitant]
     Active Substance: BROMAZEPAM
     Indication: INSOMNIA
     Route: 065
  29. RISPERDAL [Suspect]
     Active Substance: RISPERIDONE
     Indication: AGITATION
     Dosage: 0.5-0.5-0.5 MG
     Route: 048
     Dates: end: 20150101
  30. PIPAMPERONE [Suspect]
     Active Substance: PIPAMPERONE
     Indication: DEMENTIA
     Route: 065
  31. DOXEPIN [Suspect]
     Active Substance: DOXEPIN
     Indication: AGITATION
     Dosage: 10-10-25 MG DOSAGE
     Route: 065
  32. ASPIRIN. [Concomitant]
     Active Substance: ASPIRIN
     Indication: PRODUCT USED FOR UNKNOWN INDICATION
     Route: 065
  33. BROMAZANIL [Concomitant]
     Active Substance: BROMAZEPAM
     Indication: AGITATION
     Route: 065
  34. BROMAZANIL [Concomitant]
     Active Substance: BROMAZEPAM
     Indication: DEMENTIA
     Route: 065
  35. BROMAZANIL [Concomitant]
     Active Substance: BROMAZEPAM
     Indication: INSOMNIA
     Route: 065
  36. BROMAZANIL [Concomitant]
     Active Substance: BROMAZEPAM
     Indication: RESTLESSNESS
     Dosage: 3 TO 4 TIMES
     Route: 065
  37. BROMAZANIL [Concomitant]
     Active Substance: BROMAZEPAM
     Indication: RESTLESSNESS
     Route: 065
  38. PANTOPRAZOLE [Concomitant]
     Active Substance: PANTOPRAZOLE
     Dosage: MORNING
     Route: 065
  39. DOXEPIN [Suspect]
     Active Substance: DOXEPIN
     Indication: RESTLESSNESS
     Dosage: 10-10-25 MG DOSAGE
     Route: 065
  40. DOXEPIN [Suspect]
     Active Substance: DOXEPIN
     Indication: DEMENTIA
     Route: 065
  41. BROMAZANIL [Concomitant]
     Active Substance: BROMAZEPAM
     Indication: INSOMNIA
     Dosage: 3 TO 4 TIMES
     Route: 065
  42. BROMAZANIL [Concomitant]
     Active Substance: BROMAZEPAM
     Indication: ANXIETY
     Dosage: 3 TO 4 TIMES
     Route: 065
  43. BROMAZANIL [Concomitant]
     Active Substance: BROMAZEPAM
     Indication: ANXIETY
     Route: 065
  44. POTASSIUM [Concomitant]
     Active Substance: POTASSIUM
     Dosage: MORNING
     Route: 065
  45. ANASTROZOLE. [Concomitant]
     Active Substance: ANASTROZOLE
     Indication: PRODUCT USED FOR UNKNOWN INDICATION
     Route: 065
  46. BROMAZANIL [Concomitant]
     Active Substance: BROMAZEPAM
     Indication: RESTLESSNESS
     Route: 065
  47. BROMAZANIL [Concomitant]
     Active Substance: BROMAZEPAM
     Indication: AGITATION
     Dosage: 3 TO 4 TIMES
     Route: 065

REACTIONS (2)
  - Blood creatinine increased [Unknown]
  - Hypothermia [Recovered/Resolved]

NARRATIVE: CASE EVENT DATE: 20141231
